FAERS Safety Report 6456748-0 (Version None)
Quarter: 2009Q4

REPORT INFORMATION
  Report Type: 
  Country: None (occurrence: None)
  Receive Date: 20091120
  Receipt Date: 20091114
  Transmission Date: 20100525
  Serious: No
  Sender: FDA-Public Use
  Company Number: 20097689

PATIENT
  Sex: Female

DRUGS (1)
  1. LIORESAL [Suspect]
     Indication: MUSCLE SPASTICITY
     Dosage: DAILY, INTRATHECAL
     Route: 037

REACTIONS (1)
  - MEDICAL DEVICE COMPLICATION [None]
